FAERS Safety Report 7817631-9 (Version None)
Quarter: 2011Q4

REPORT INFORMATION
  Report Type: 
  Country: None (occurrence: None)
  Receive Date: 20111017
  Receipt Date: 20111006
  Transmission Date: 20120403
  Serious: Yes (Other)
  Sender: FDA-Public Use
  Company Number: FR-ALLERGAN-1113498US

PATIENT
  Age: 73 Year
  Sex: Female

DRUGS (2)
  1. TROSPIUM CHLORIDE [Suspect]
     Indication: URINARY INCONTINENCE
     Dosage: 20 MG, UNK
     Route: 048
     Dates: start: 20101101, end: 20110601
  2. ASPIRIN [Concomitant]

REACTIONS (1)
  - GLAUCOMA [None]
